FAERS Safety Report 14414272 (Version 2)
Quarter: 2018Q1

REPORT INFORMATION
  Report Type: Spontaneous
  Country: JP (occurrence: JP)
  Receive Date: 20180120
  Receipt Date: 20180330
  Transmission Date: 20180509
  Serious: Yes (Life-Threatening, Other)
  Sender: FDA-Public Use
  Company Number: JP-AMGEN-JPNSP2018007903

PATIENT
  Age: 69 Year
  Sex: Female
  Weight: 42 kg

DRUGS (9)
  1. PANITUMUMAB [Suspect]
     Active Substance: PANITUMUMAB
     Indication: RECTAL CANCER
     Dosage: 240 MG, Q2WK
     Route: 041
     Dates: start: 20171213, end: 20171226
  2. FLUOROURACIL. [Concomitant]
     Active Substance: FLUOROURACIL
     Dosage: 2400 MG, Q2WEEKS
     Route: 041
     Dates: start: 20171109, end: 20171121
  3. FLUOROURACIL. [Concomitant]
     Active Substance: FLUOROURACIL
     Dosage: 2400 MG, Q2WK
     Route: 041
     Dates: start: 20171213, end: 20171226
  4. OXALIPLATIN. [Concomitant]
     Active Substance: OXALIPLATIN
     Indication: RECTAL CANCER
     Dosage: 114 MG, Q2WEEKS
     Route: 041
     Dates: start: 20171109, end: 20171121
  5. OXALIPLATIN. [Concomitant]
     Active Substance: OXALIPLATIN
     Dosage: 114 MG, Q2WEEKS
     Route: 041
     Dates: start: 20171213, end: 20171226
  6. FLUOROURACIL. [Concomitant]
     Active Substance: FLUOROURACIL
     Dosage: UNK UNK, Q2WK
     Route: 040
     Dates: start: 20171213, end: 20171226
  7. CALCIUM LEVOFOLINATE [Concomitant]
     Active Substance: LEVOLEUCOVORIN CALCIUM
     Indication: RECTAL CANCER
     Dosage: 268 MG, Q2WEEKS
     Route: 041
     Dates: start: 20171109, end: 20171121
  8. CALCIUM LEVOFOLINATE [Concomitant]
     Active Substance: LEVOLEUCOVORIN CALCIUM
     Dosage: 268 MG, Q2WEEKS
     Route: 041
     Dates: start: 20171213, end: 20171226
  9. FLUOROURACIL. [Concomitant]
     Active Substance: FLUOROURACIL
     Indication: RECTAL CANCER
     Dosage: UNK, Q2WK
     Route: 040
     Dates: start: 20171109, end: 20171121

REACTIONS (5)
  - Dehydration [Unknown]
  - Large intestinal haemorrhage [Recovered/Resolved]
  - Pneumatosis intestinalis [Recovering/Resolving]
  - Respiratory failure [Unknown]
  - Diarrhoea [Unknown]

NARRATIVE: CASE EVENT DATE: 20171231
